FAERS Safety Report 8373011-1 (Version None)
Quarter: 2012Q2

REPORT INFORMATION
  Report Type: 
  Country: None (occurrence: None)
  Receive Date: 20120521
  Receipt Date: 20120116
  Transmission Date: 20120825
  Serious: No
  Sender: FDA-Public Use
  Company Number: US-ASTRAZENECA-2012SE07695

PATIENT
  Sex: Male

DRUGS (5)
  1. PRILOSEC OTC [Suspect]
     Indication: BARRETT'S OESOPHAGUS
     Route: 048
  2. METOPROLOL [Concomitant]
     Dosage: UNKNOWN
  3. TRIPTAPAN [Concomitant]
     Dosage: UNKNOWN
  4. PRILOSEC OTC [Suspect]
     Indication: GASTROOESOPHAGEAL REFLUX DISEASE
     Route: 048
  5. XANAX [Concomitant]
     Dosage: UNKNOWN

REACTIONS (2)
  - NAUSEA [None]
  - WRONG TECHNIQUE IN DRUG USAGE PROCESS [None]
